FAERS Safety Report 23284956 (Version 2)
Quarter: 2023Q4

REPORT INFORMATION
  Report Type: Spontaneous
  Country: EU (occurrence: EU)
  Receive Date: 20231211
  Receipt Date: 20231219
  Transmission Date: 20240110
  Serious: Yes (Death, Life-Threatening, Other)
  Sender: FDA-Public Use
  Company Number: EU-MLMSERVICE-20230102-4017696-1

PATIENT

DRUGS (3)
  1. BUPRENORPHINE HYDROCHLORIDE [Suspect]
     Active Substance: BUPRENORPHINE HYDROCHLORIDE
  2. CLONAZEPAM [Suspect]
     Active Substance: CLONAZEPAM
  3. PREGABALIN [Suspect]
     Active Substance: PREGABALIN

REACTIONS (4)
  - Drug abuse [Fatal]
  - Pulmonary oedema [Fatal]
  - Brain oedema [Fatal]
  - Visceral congestion [Fatal]
